FAERS Safety Report 14547275 (Version 1)
Quarter: 2018Q1

REPORT INFORMATION
  Report Type: Spontaneous
  Country: CZ (occurrence: CZ)
  Receive Date: 20180219
  Receipt Date: 20180219
  Transmission Date: 20180509
  Serious: Yes (Other)
  Sender: FDA-Public Use
  Company Number: CZ-MYLANLABS-2018M1010467

PATIENT
  Age: 58 Year
  Sex: Female

DRUGS (8)
  1. FURON [Suspect]
     Active Substance: FUROSEMIDE
     Indication: CARDIAC FAILURE ACUTE
     Dosage: 40 MG, QD
     Dates: start: 200404, end: 2004
  2. ATORVASTATIN [Suspect]
     Active Substance: ATORVASTATIN
     Indication: CARDIAC FAILURE ACUTE
     Dosage: 10 MG, QD
     Dates: start: 200404
  3. AGEN [Suspect]
     Active Substance: AMLODIPINE BESYLATE
     Indication: CARDIAC FAILURE ACUTE
     Dosage: FORM STRENGTH OF 10 (UNSPECIFIED UNIT)
     Dates: start: 200404, end: 2004
  4. HUMULIN N [Concomitant]
     Active Substance: INSULIN HUMAN
     Indication: TYPE 2 DIABETES MELLITUS
     Dosage: 12 IU AT 21:00
     Route: 058
  5. VEROSPIRONE [Suspect]
     Active Substance: SPIRONOLACTONE
     Indication: CARDIAC FAILURE ACUTE
     Dosage: 50 MG, QD
     Dates: start: 200404, end: 2004
  6. HUMULIN R [Concomitant]
     Active Substance: INSULIN HUMAN
     Indication: TYPE 2 DIABETES MELLITUS
     Dosage: 16-8-9 IU
     Route: 058
  7. HUMULIN R [Concomitant]
     Active Substance: INSULIN HUMAN
     Dosage: 20-8-8 IU
  8. CONCOR COR [Suspect]
     Active Substance: BISOPROLOL FUMARATE
     Indication: CARDIAC FAILURE ACUTE
     Dosage: 1-0-1/2

REACTIONS (4)
  - Dyspnoea [Recovered/Resolved]
  - Glycosylated haemoglobin increased [None]
  - Pulmonary oedema [Recovered/Resolved]
  - Blood pressure increased [Recovered/Resolved]

NARRATIVE: CASE EVENT DATE: 2004
